FAERS Safety Report 6431392-X (Version None)
Quarter: 2009Q4

REPORT INFORMATION
  Report Type: 
  Country: None (occurrence: None)
  Receive Date: 20091106
  Receipt Date: 20091028
  Transmission Date: 20100525
  Serious: Yes (Hospitalization)
  Sender: FDA-Public Use
  Company Number: PHEH2009US14705

PATIENT

DRUGS (1)
  1. EXELON [Suspect]

REACTIONS (1)
  - DRUG ADMINISTRATION ERROR [None]
